FAERS Safety Report 24383380 (Version 1)
Quarter: 2024Q4

REPORT INFORMATION
  Report Type: Spontaneous
  Country: DZ (occurrence: DZ)
  Receive Date: 20241001
  Receipt Date: 20241001
  Transmission Date: 20250114
  Serious: Yes (Other)
  Sender: BIOLOGICAL E.
  Company Number: DZ-BELUSA-2024BELLIT0103

PATIENT

DRUGS (1)
  1. ENOXAPARIN SODIUM [Suspect]
     Active Substance: ENOXAPARIN SODIUM
     Indication: Ovarian vein thrombosis
     Route: 065

REACTIONS (1)
  - Drug ineffective [Unknown]
